FAERS Safety Report 8400492-7 (Version None)
Quarter: 2012Q2

REPORT INFORMATION
  Report Type: 
  Country: None (occurrence: None)
  Receive Date: 20120531
  Receipt Date: 20120523
  Transmission Date: 20120825
  Serious: Yes (Hospitalization)
  Sender: FDA-Public Use
  Company Number: JP-NOVOPROD-352560

PATIENT
  Age: 75 Year
  Sex: Male
  Weight: 80 kg

DRUGS (14)
  1. REZALTAS [Concomitant]
  2. VITAMIN B12 [Concomitant]
  3. OMEPRAZOLE [Concomitant]
  4. CELEBREX [Concomitant]
  5. LYRICA [Concomitant]
  6. ALPROSTADIL ALFADEX [Concomitant]
  7. WARFARIN K [Concomitant]
  8. PRAVASTATIN SODIUM [Concomitant]
  9. LOXONIN [Concomitant]
  10. VICTOZA [Suspect]
     Indication: TYPE 2 DIABETES MELLITUS
     Dosage: 0.3 MG, QD
     Route: 058
     Dates: start: 20120427
  11. VICTOZA [Suspect]
     Dosage: 0.9 MG, QD
     Route: 058
     Dates: start: 20120503, end: 20120523
  12. PLAVIX [Concomitant]
  13. AMARYL [Concomitant]
  14. VICTOZA [Suspect]
     Dosage: 0.6 MG, QD
     Route: 058
     Dates: start: 20120430

REACTIONS (3)
  - HAEMATOCHEZIA [None]
  - DIVERTICULAR PERFORATION [None]
  - DIVERTICULUM INTESTINAL [None]
